FAERS Safety Report 5334420-8 (Version None)
Quarter: 2007Q2

REPORT INFORMATION
  Report Type: 
  Country: None (occurrence: None)
  Receive Date: 20070523
  Receipt Date: 20070523
  Transmission Date: 20071010
  Serious: Yes (Hospitalization)
  Sender: FDA-Public Use
  Company Number: None

PATIENT
  Sex: Male
  Weight: 58.1 kg

DRUGS (4)
  1. FLUOROURACIL [Suspect]
     Dates: end: 20070502
  2. BEVACIZUMAB (RHUMAB VEGF) [Concomitant]
     Dates: end: 20070502
  3. LEUCOVORIN CALCIUM [Suspect]
     Dosage: 1360 MG
     Dates: end: 20070502
  4. ELOXATIN [Suspect]
     Dosage: 288 MG
     Dates: end: 20070502

REACTIONS (5)
  - INFECTION [None]
  - NEUTROPHIL COUNT ABNORMAL [None]
  - PAIN IN EXTREMITY [None]
  - PROCTALGIA [None]
  - RECTAL ABSCESS [None]
